FAERS Safety Report 4990594-X (Version None)
Quarter: 2006Q2

REPORT INFORMATION
  Report Type: 
  Country: None (occurrence: None)
  Receive Date: 20060427
  Receipt Date: 20060413
  Transmission Date: 20061013
  Serious: Yes (Life-Threatening, Hospitalization)
  Sender: FDA-Public Use
  Company Number: 200612132BWH

PATIENT
  Age: 81 Year
  Sex: Male
  Weight: 83.0083 kg

DRUGS (1)
  1. NEXAVAR [Suspect]
     Indication: RENAL CELL CARCINOMA STAGE UNSPECIFIED
     Dosage: 400 MG, BID, ORAL
     Route: 048
     Dates: start: 20060207, end: 20060318

REACTIONS (6)
  - AORTIC DISORDER [None]
  - CARDIAC DISORDER [None]
  - HYPERTENSION [None]
  - ORAL PAIN [None]
  - SKIN EXFOLIATION [None]
  - WEIGHT DECREASED [None]
